FAERS Safety Report 24271591 (Version 1)
Quarter: 2024Q3

REPORT INFORMATION
  Report Type: Report from Study
  Country: US (occurrence: US)
  Receive Date: 20240902
  Receipt Date: 20240902
  Transmission Date: 20241017
  Serious: Yes (Other)
  Sender: ABBVIE
  Company Number: US-ABBVIE-5703355

PATIENT
  Age: 83 Year
  Sex: Female
  Weight: 54 kg

DRUGS (26)
  1. HUMIRA [Suspect]
     Active Substance: ADALIMUMAB
     Indication: Rheumatoid arthritis
     Dosage: FORM STRENGTH: 40MILLIGRAM
     Route: 058
  2. HUMIRA [Suspect]
     Active Substance: ADALIMUMAB
     Dosage: FORM STRENGTH: 40MILLIGRAM
     Route: 058
  3. TOPROL XL [Concomitant]
     Active Substance: METOPROLOL SUCCINATE
     Indication: Product used for unknown indication
     Dosage: 25 MG 24 HR TABLET?TAKE 1 TABLET BY MOUTH DAILY,  XL
     Route: 048
  4. BACTROBAN [Concomitant]
     Active Substance: MUPIROCIN CALCIUM
     Indication: Product used for unknown indication
     Dosage: APPLY TOPICALLY TO TOE, 2 TIMES DAILY
     Route: 061
  5. CELLCEPT [Concomitant]
     Active Substance: MYCOPHENOLATE MOFETIL
     Indication: Product used for unknown indication
     Dosage: 500 MG TABLET?TAKE 2 TABLETS BY MOUTH 2 TIMES DAILY
     Route: 048
  6. NITROSTAT [Concomitant]
     Active Substance: NITROGLYCERIN
     Indication: Chest pain
     Dosage: PLACE 1 TABLET UNDER THE TONGUE EVERY 5 MINUTES
     Route: 048
  7. MYCOSTATIN [Concomitant]
     Active Substance: NYSTATIN
     Indication: Product used for unknown indication
     Dosage: STRENGTH- 100000 UNIT/ML SUSPENSION?TAKE 5 MLS BY MOUTH 4 TIMES DAILY.
  8. PRILOSEC [Concomitant]
     Active Substance: OMEPRAZOLE MAGNESIUM
     Indication: Product used for unknown indication
     Dosage: TAKE 1 CAPSULE BY MOUTH 2 TIMES DAILY. TAKE 1 CAPSULE BY MOUTH DAILY
     Route: 048
  9. ROXICODONE [Concomitant]
     Active Substance: OXYCODONE HYDROCHLORIDE
     Indication: Pain
     Dosage: 5 MG IMMEDIATE RELEASE TABLET?TAKE 5 MG BY MOUTH EVERY 8 HOURS AS NEEDED
     Route: 048
  10. VEETID [Concomitant]
     Indication: Product used for unknown indication
     Dosage: TAKE ONE TABLET BY MOUTH FOUR TIMES DAILY FOR 30 DAYS. START AFTER AUGMENTIN COMPLETED
     Route: 048
  11. TRENTAL [Concomitant]
     Active Substance: PENTOXIFYLLINE
     Indication: Product used for unknown indication
     Route: 048
  12. DIETARY SUPPLEMENT\PROBIOTICS [Concomitant]
     Active Substance: DIETARY SUPPLEMENT\PROBIOTICS NOS
     Indication: Product used for unknown indication
     Dosage: TAKE BY MOUTH, OR
  13. KENALOG [Concomitant]
     Active Substance: TRIAMCINOLONE ACETONIDE
     Indication: Product used for unknown indication
     Dosage: APPLY TOPICALLY 2 TIMES DAILY AS NEEDED.
     Route: 061
  14. VITAMIN E [Concomitant]
     Active Substance: .ALPHA.-TOCOPHEROL
     Indication: Product used for unknown indication
     Dosage: TAKE 1 CAPSULE BY MOUTH DAILY
     Route: 048
  15. ZOVIRAX [Concomitant]
     Active Substance: ACYCLOVIR
     Indication: Product used for unknown indication
     Dosage: TIME INTERVAL: 0.33333333 DAYS: TAKE ONE TABLET BY MOUTH THREE TIMES A DAY AS?NEEDED FOR OUTBREAK...
     Route: 048
  16. ASPIRIN [Concomitant]
     Active Substance: ASPIRIN
     Indication: Product used for unknown indication
     Dosage: STRENGTH 81 MG
     Route: 048
  17. LIPITOR [Concomitant]
     Active Substance: ATORVASTATIN CALCIUM
     Indication: Product used for unknown indication
     Dosage: TAKE 1 TABLET BY MOUTH ONCE DAILY
     Route: 048
  18. CALCIUM CARBONATE\VITAMIN D [Concomitant]
     Active Substance: CALCIUM CARBONATE\VITAMIN D
     Indication: Product used for unknown indication
     Dosage: 600-200 MG-UNIT TABS?TAKE 2 TABLETS BY MOUTH DAILY.
     Route: 048
  19. COENZYME Q10 [Concomitant]
     Active Substance: DIETARY SUPPLEMENT\UBIDECARENONE
     Indication: Product used for unknown indication
     Dosage: TAKE 30 MG BY MOUTH DAILY.
     Route: 048
  20. FISH OIL [Concomitant]
     Active Substance: FISH OIL
     Indication: Product used for unknown indication
     Dosage: 1000 MG CAPS
     Route: 048
  21. SYNALAR [Concomitant]
     Active Substance: FLUOCINOLONE ACETONIDE
     Indication: Product used for unknown indication
     Dosage: MASSAGE INTO THE AFFECTED AREAS OF SCALP 2 TIMES DAILY^OR 14 DAYS?0.01%
  22. HYDROCORTISONE [Concomitant]
     Active Substance: HYDROCORTISONE\HYDROCORTISONE ACETATE
     Indication: Product used for unknown indication
     Dosage: 2.5 % APPLY TO FACE AND OR EYELIDS TWICE DAILY FOR UP TO 2?WEEKS MAXIMUM, THEN STOP FOR ONE WEEK
  23. NIZORAL [Concomitant]
     Active Substance: KETOCONAZOLE
     Indication: Product used for unknown indication
     Dosage: APPLY TOPICALLY DAILY. TO FACE
     Route: 061
  24. ZADITOR [Concomitant]
     Active Substance: KETOTIFEN FUMARATE
     Indication: Product used for unknown indication
     Dosage: PLACE 1 DROP INTO BOTH EYES 2 TIMES DAILY.
     Route: 047
  25. LEVOTHYROXINE [Concomitant]
     Active Substance: LEVOTHYROXINE\LEVOTHYROXINE SODIUM
     Indication: Product used for unknown indication
     Dosage: TAKE 1 TABLET BY MOUTH DAILY
     Route: 050
  26. MELATONIN [Concomitant]
     Active Substance: MELATONIN
     Indication: Product used for unknown indication
     Dosage: TAKE 10 MG BY MOUTH NIGHTLY. ?STRENGTH- 5 MG

REACTIONS (17)
  - Ventricular tachycardia [Not Recovered/Not Resolved]
  - Hip fracture [Recovering/Resolving]
  - Fall [Recovering/Resolving]
  - Physical deconditioning [Not Recovered/Not Resolved]
  - Spinal osteoarthritis [Not Recovered/Not Resolved]
  - Coronary artery disease [Not Recovered/Not Resolved]
  - Malnutrition [Not Recovered/Not Resolved]
  - Dyspnoea exertional [Not Recovered/Not Resolved]
  - Pulmonary artery dilatation [Not Recovered/Not Resolved]
  - Bronchial secretion retention [Not Recovered/Not Resolved]
  - Interstitial lung disease [Not Recovered/Not Resolved]
  - Brachiocephalic vein stenosis [Not Recovered/Not Resolved]
  - Aortic aneurysm [Not Recovered/Not Resolved]
  - Spinal osteoarthritis [Not Recovered/Not Resolved]
  - Angiopathy [Not Recovered/Not Resolved]
  - Peripheral arterial occlusive disease [Not Recovered/Not Resolved]
  - Type IIa hyperlipidaemia [Not Recovered/Not Resolved]

NARRATIVE: CASE EVENT DATE: 20170307
